FAERS Safety Report 10884885 (Version 1)
Quarter: 2015Q1

REPORT INFORMATION
  Report Type: Spontaneous
  Country: US (occurrence: US)
  Receive Date: 20150304
  Receipt Date: 20150304
  Transmission Date: 20150721
  Serious: No
  Sender: FDA-Public Use
  Company Number: US-TEVA-473103USA

PATIENT
  Age: 7 Year
  Sex: Female
  Weight: 24.06 kg

DRUGS (2)
  1. XYZAL [Concomitant]
     Active Substance: LEVOCETIRIZINE DIHYDROCHLORIDE
     Dosage: UNSPECIFIED WHEY SHAKE
  2. AMOXICILLIN. [Suspect]
     Active Substance: AMOXICILLIN
     Indication: PHARYNGITIS STREPTOCOCCAL
     Dosage: 400 MG/5 ML, 2.5 TSP
     Route: 048
     Dates: start: 20140318, end: 20140318

REACTIONS (4)
  - Adverse reaction [Unknown]
  - Tearfulness [Unknown]
  - Mood altered [Unknown]
  - Abnormal behaviour [Unknown]

NARRATIVE: CASE EVENT DATE: 20140318
